FAERS Safety Report 9912933 (Version 1)
Quarter: 2014Q1

REPORT INFORMATION
  Report Type: Spontaneous
  Country: US (occurrence: None)
  Receive Date: 20140218
  Receipt Date: 20140218
  Transmission Date: 20141002
  Serious: No
  Sender: FDA-Public Use
  Company Number: None

PATIENT
  Age: 43 Year
  Sex: Female
  Weight: 57.7 kg

DRUGS (2)
  1. LAMOTRIGINE [Suspect]
     Indication: BIPOLAR DISORDER
     Dosage: MG
     Route: 048
     Dates: start: 20140124, end: 20140203
  2. LAMOTRIGINE [Suspect]
     Indication: MANIA
     Dosage: MG
     Route: 048
     Dates: start: 20140124, end: 20140203

REACTIONS (7)
  - Rash [None]
  - Skin burning sensation [None]
  - Skin disorder [None]
  - Swelling face [None]
  - Lip swelling [None]
  - Pharyngeal oedema [None]
  - Dyspnoea [None]
